FAERS Safety Report 12700352 (Version 1)
Quarter: 2016Q3

REPORT INFORMATION
  Report Type: Spontaneous
  Country: US (occurrence: US)
  Receive Date: 20160830
  Receipt Date: 20160830
  Transmission Date: 20161109
  Serious: No
  Sender: FDA-Public Use
  Company Number: US-SA-2015SA216842

PATIENT
  Age: 55 Year
  Sex: Male
  Weight: 80.28 kg

DRUGS (29)
  1. ASPIRIN. [Concomitant]
     Active Substance: ASPIRIN
     Dosage: AS DIRECTED
     Dates: start: 20141226
  2. VITAMIN D3 [Concomitant]
     Active Substance: CHOLECALCIFEROL
     Dosage: AS DIRECTED DOSE:5000 UNIT(S)
     Dates: start: 20141226
  3. LOPRESSOR [Concomitant]
     Active Substance: METOPROLOL TARTRATE
     Dosage: AS DIRECTED
     Dates: start: 20141226
  4. PROAIR HFA [Concomitant]
     Active Substance: ALBUTEROL SULFATE
     Dosage: AS DIRECTED
     Dates: start: 20141226
  5. EPIPEN [Concomitant]
     Active Substance: EPINEPHRINE
     Indication: ANAPHYLACTIC REACTION
     Dosage: AS DIRECTED
     Route: 030
     Dates: start: 20150715
  6. NEURONTIN [Concomitant]
     Active Substance: GABAPENTIN
  7. NORVASC [Concomitant]
     Active Substance: AMLODIPINE BESYLATE
  8. COZAAR [Concomitant]
     Active Substance: LOSARTAN POTASSIUM
     Route: 048
     Dates: start: 20111104
  9. AVODART [Concomitant]
     Active Substance: DUTASTERIDE
     Dosage: AS DIRECTED
     Dates: start: 20141226
  10. DURAGESIC [Concomitant]
     Active Substance: FENTANYL
     Dosage: 50 MCG/HR PATCH AS DIRECTED
     Dates: start: 20141226
  11. COLACE [Concomitant]
     Active Substance: DOCUSATE SODIUM
     Dosage: AS DIRECTED
     Dates: start: 20141226
  12. PROGRAF [Concomitant]
     Active Substance: TACROLIMUS\TACROLIMUS ANHYDROUS
     Route: 048
     Dates: start: 20151103
  13. ZANTAC [Concomitant]
     Active Substance: RANITIDINE HYDROCHLORIDE
     Dosage: AS DIRECTED
     Dates: start: 20141226
  14. ATIVAN [Concomitant]
     Active Substance: LORAZEPAM
     Dosage: AS DIRECTED
     Dates: start: 20141226
  15. PERCOCET [Concomitant]
     Active Substance: ACETAMINOPHEN\OXYCODONE HYDROCHLORIDE
     Dosage: AS DIRECTED
     Dates: start: 20141226
  16. FABRAZYME [Suspect]
     Active Substance: AGALSIDASE BETA
     Indication: FABRY^S DISEASE
     Route: 042
     Dates: start: 20090209, end: 2015
  17. PROGRAF [Concomitant]
     Active Substance: TACROLIMUS\TACROLIMUS ANHYDROUS
     Dates: start: 20141226
  18. TEGRETOL [Concomitant]
     Active Substance: CARBAMAZEPINE
     Dosage: AS DIRECTED
     Dates: start: 20141226
  19. ADVAIR DISKUS [Concomitant]
     Active Substance: FLUTICASONE PROPIONATE\SALMETEROL XINAFOATE
     Dosage: AS DIRECTED
     Dates: start: 20141226
  20. ZETIA [Concomitant]
     Active Substance: EZETIMIBE
     Dosage: AS DIRECTED
     Dates: start: 20141226
  21. NORMAL SALINE [Concomitant]
     Active Substance: SODIUM CHLORIDE
     Indication: ANAPHYLACTIC REACTION
     Dosage: AS DIRECTED
     Route: 042
     Dates: start: 20150715
  22. NEXIUM [Concomitant]
     Active Substance: ESOMEPRAZOLE MAGNESIUM
     Dosage: AS DIRECTED
     Dates: start: 20141226
  23. FLOMAX [Concomitant]
     Active Substance: TAMSULOSIN HYDROCHLORIDE
     Dosage: AS DIRECTED
     Dates: start: 20141226
  24. XYZAL [Concomitant]
     Active Substance: LEVOCETIRIZINE DIHYDROCHLORIDE
     Dosage: AS DIRECTED
     Dates: start: 20141226
  25. CARAFATE [Concomitant]
     Active Substance: SUCRALFATE
     Dosage: AS DIRECTED
     Dates: start: 20141226
  26. COLCRYS [Concomitant]
     Active Substance: COLCHICINE
     Dosage: AS DIRECTED
     Dates: start: 20141226
  27. MYFORTIC [Concomitant]
     Active Substance: MYCOPHENOLATE SODIUM
  28. COZAAR [Concomitant]
     Active Substance: LOSARTAN POTASSIUM
     Dosage: AS DIRECTED
     Dates: start: 20141226
  29. DEMADEX [Concomitant]
     Active Substance: TORSEMIDE
     Dosage: AS DIRECTED
     Dates: start: 20141226

REACTIONS (1)
  - Drug dose omission [Unknown]
